FAERS Safety Report 10284370 (Version 1)
Quarter: 2014Q3

REPORT INFORMATION
  Report Type: Spontaneous
  Country: JP (occurrence: None)
  Receive Date: 20140703
  Receipt Date: 20140703
  Transmission Date: 20150326
  Serious: No
  Sender: FDA-Public Use
  Company Number: B1006508A

PATIENT
  Age: 60 Year
  Sex: Male

DRUGS (6)
  1. LAMOTRIGINE. [Suspect]
     Active Substance: LAMOTRIGINE
     Indication: BIPOLAR DISORDER
     Dosage: 50MG /TWICE PER DAY/
     Route: 048
     Dates: end: 2014
  2. ARIPIPRAZOLE [Concomitant]
     Active Substance: ARIPIPRAZOLE
  3. OLANZAPINE. [Concomitant]
     Active Substance: OLANZAPINE
  4. LAMOTRIGINE. [Suspect]
     Active Substance: LAMOTRIGINE
     Indication: BIPOLAR DISORDER
     Dosage: 50 MG/PER DAY/
     Route: 048
     Dates: start: 2014
  5. LAMOTRIGINE. [Suspect]
     Active Substance: LAMOTRIGINE
     Indication: BIPOLAR DISORDER
     Dosage: 50 MG/PER DAY
     Route: 048
     Dates: start: 201406
  6. PAROXETINE HYDROCHLORIDE TABLET (PAROXETINE HYDROCHLORIDE) [Suspect]
     Active Substance: PAROXETINE HYDROCHLORIDE
     Indication: OBSESSIVE-COMPULSIVE DISORDER
     Dosage: 40 MG/ PER DAY
     Route: 048

REACTIONS (1)
  - Epilepsy [None]

NARRATIVE: CASE EVENT DATE: 20140618
